FAERS Safety Report 7151355-9 (Version None)
Quarter: 2010Q4

REPORT INFORMATION
  Report Type: 
  Country: None (occurrence: None)
  Receive Date: 20101126
  Receipt Date: 20101116
  Transmission Date: 20110411
  Serious: Yes (Other)
  Sender: FDA-Public Use
  Company Number: 2010P1002665

PATIENT

DRUGS (1)
  1. ROCURONIUM BROMIDE INJECTION 10 MG/ML, 5 ML VIAL (NO PREF. NAME) [Suspect]
     Indication: ANAESTHESIA
     Dosage: ; IV
     Route: 042

REACTIONS (2)
  - DRUG INEFFECTIVE [None]
  - RESPIRATORY DISTRESS [None]
